FAERS Safety Report 17307757 (Version 6)
Quarter: 2020Q2

REPORT INFORMATION
  Report Type: Spontaneous
  Country: BR (occurrence: BR)
  Receive Date: 20200123
  Receipt Date: 20200602
  Transmission Date: 20200713
  Serious: Yes (Other)
  Sender: FDA-Public Use
  Company Number: BR-GLAXOSMITHKLINE-BR2016GSK112839

PATIENT
  Age: 38 Year
  Sex: Female
  Weight: 51 kg

DRUGS (1)
  1. BENLYSTA [Suspect]
     Active Substance: BELIMUMAB
     Indication: SYSTEMIC LUPUS ERYTHEMATOSUS
     Dosage: UNK (5 BOTTLES 120MG)
     Route: 042
     Dates: start: 20151218

REACTIONS (20)
  - Cough [Recovered/Resolved]
  - Pyrexia [Recovered/Resolved]
  - Mental disorder [Recovered/Resolved]
  - Product supply issue [Unknown]
  - Influenza [Recovered/Resolved]
  - Weight decreased [Recovered/Resolved]
  - Surgery [Recovered/Resolved]
  - Ill-defined disorder [Unknown]
  - Skin cancer [Unknown]
  - Depression [Unknown]
  - Disease recurrence [Unknown]
  - Neoplasm skin [Unknown]
  - Product dose omission [Not Recovered/Not Resolved]
  - Infection [Recovered/Resolved]
  - Renal disorder [Recovered/Resolved]
  - Weight increased [Recovered/Resolved]
  - Overdose [Unknown]
  - Urinary tract infection [Recovered/Resolved]
  - Inappropriate schedule of product administration [Recovered/Resolved]
  - Vitamin D deficiency [Unknown]

NARRATIVE: CASE EVENT DATE: 20180116
